FAERS Safety Report 21461218 (Version 3)
Quarter: 2022Q4

REPORT INFORMATION
  Report Type: Report from Study
  Country: US (occurrence: US)
  Receive Date: 20221015
  Receipt Date: 20221111
  Transmission Date: 20230113
  Serious: No
  Sender: FDA-Public Use
  Company Number: US-ABBVIE-4143090

PATIENT
  Sex: Male

DRUGS (1)
  1. IMBRUVICA [Suspect]
     Active Substance: IBRUTINIB
     Indication: Chronic lymphocytic leukaemia
     Route: 048
     Dates: start: 20200117

REACTIONS (10)
  - Penis disorder [Unknown]
  - Rash macular [Unknown]
  - Rash [Unknown]
  - Buried penis syndrome [Unknown]
  - Respiratory disorder [Unknown]
  - Erythema [Unknown]
  - Testicular swelling [Unknown]
  - Penile swelling [Unknown]
  - Adverse drug reaction [Unknown]
  - Skin irritation [Unknown]
